FAERS Safety Report 9366018 (Version 1)
Quarter: 2013Q2

REPORT INFORMATION
  Report Type: Spontaneous
  Country: US (occurrence: US)
  Receive Date: 20130625
  Receipt Date: 20130625
  Transmission Date: 20140414
  Serious: No
  Sender: FDA-Public Use
  Company Number: US-FOUGERA-2012FO001179

PATIENT
  Age: 48 Year
  Sex: Female

DRUGS (2)
  1. METRONIDAZOLE [Suspect]
     Indication: ROSACEA
     Route: 061
     Dates: start: 20120402, end: 20120406
  2. BACTRIM [Concomitant]
     Indication: ROSACEA
     Route: 048
     Dates: start: 20120402

REACTIONS (1)
  - Application site irritation [Recovered/Resolved]
